FAERS Safety Report 8490698-3 (Version None)
Quarter: 2012Q3

REPORT INFORMATION
  Report Type: 
  Country: None (occurrence: None)
  Receive Date: 20120706
  Receipt Date: 20120623
  Transmission Date: 20120928
  Serious: Yes (Hospitalization, Other)
  Sender: FDA-Public Use
  Company Number: NL-PAR PHARMACEUTICAL, INC-2012SCPR004475

PATIENT

DRUGS (5)
  1. PREGABALIN [Concomitant]
     Indication: COMPLEX REGIONAL PAIN SYNDROME
     Dosage: UNK, UNKNOWN
     Route: 065
  2. GABAPENTIN [Concomitant]
     Indication: COMPLEX REGIONAL PAIN SYNDROME
     Dosage: UNK, UNKNOWN
     Route: 065
  3. TRAMADOL HYDROCHLORIDE [Suspect]
     Indication: COMPLEX REGIONAL PAIN SYNDROME
     Dosage: UNK, UNKNOWN
     Route: 065
  4. AMITRIPTYLINE HCL [Concomitant]
     Indication: COMPLEX REGIONAL PAIN SYNDROME
     Dosage: 25 MG, UNKNOWN
     Route: 048
  5. NSAID'S [Concomitant]
     Indication: COMPLEX REGIONAL PAIN SYNDROME
     Dosage: UNK, UNKNOWN
     Route: 065

REACTIONS (3)
  - ILEUS [None]
  - FEELING ABNORMAL [None]
  - SOMNOLENCE [None]
